FAERS Safety Report 6677190-3 (Version None)
Quarter: 2010Q2

REPORT INFORMATION
  Report Type: 
  Country: None (occurrence: None)
  Receive Date: 20100412
  Receipt Date: 20100331
  Transmission Date: 20101027
  Serious: Yes (Other)
  Sender: FDA-Public Use
  Company Number: US-PFIZER INC-2007062840

PATIENT
  Sex: Female
  Weight: 90.703 kg

DRUGS (15)
  1. CHANTIX [Suspect]
     Indication: SMOKING CESSATION THERAPY
     Dosage: 1 MG, 2X/DAY
     Dates: start: 20061101
  2. CHANTIX [Suspect]
     Dosage: UNK
     Dates: start: 20090225
  3. CHANTIX [Suspect]
     Dosage: UNK
  4. ALL OTHER THERAPEUTIC PRODUCTS [Suspect]
  5. LITHIUM [Concomitant]
     Indication: SCHIZOAFFECTIVE DISORDER
     Dosage: UNK
  6. KLONOPIN [Concomitant]
     Dosage: UNK
  7. MELLARIL [Concomitant]
     Dosage: UNK
  8. GLUCOVANCE [Concomitant]
     Indication: DIABETES MELLITUS
     Dosage: UNK
  9. VALSARTAN [Concomitant]
     Indication: HYPERTENSION
     Dosage: UNK
  10. ANTIBIOTICS [Concomitant]
     Indication: SINUS DISORDER
     Dosage: UNK
  11. PAXIL [Concomitant]
     Dosage: UNK
  12. INSULIN DETEMIR [Concomitant]
     Dosage: UNK
  13. LIPITOR [Concomitant]
     Dosage: UNK
  14. METFORMIN [Concomitant]
     Indication: DIABETES MELLITUS
     Dosage: UNK
  15. GLYBURIDE [Concomitant]
     Indication: DIABETES MELLITUS
     Dosage: UNK

REACTIONS (14)
  - ABDOMINAL DISCOMFORT [None]
  - ANXIETY [None]
  - ARTHRITIS [None]
  - CHOLECYSTECTOMY [None]
  - DYSGEUSIA [None]
  - FEELING ABNORMAL [None]
  - HEADACHE [None]
  - HERNIA REPAIR [None]
  - INSOMNIA [None]
  - NAUSEA [None]
  - NERVOUSNESS [None]
  - SOMNOLENCE [None]
  - TOBACCO USER [None]
  - VOMITING [None]
